FAERS Safety Report 25552824 (Version 1)
Quarter: 2025Q3

REPORT INFORMATION
  Report Type: Report from Study
  Country: CN (occurrence: CN)
  Receive Date: 20250715
  Receipt Date: 20250715
  Transmission Date: 20251021
  Serious: Yes (Other)
  Sender: ROCHE
  Company Number: CN-ROCHE-10000333778

PATIENT

DRUGS (5)
  1. ATEZOLIZUMAB [Suspect]
     Active Substance: ATEZOLIZUMAB
     Indication: Small cell lung cancer extensive stage
     Route: 042
  2. CATEQUENTINIB [Suspect]
     Active Substance: CATEQUENTINIB
     Indication: Small cell lung cancer extensive stage
     Dosage: WAS ADMINISTERED AT A DOSE OF 8-12 MG, WITH A TWO-WEEK ON AND ONE-WEEK OFF SCHEDULE, AND EVERY THREE
     Route: 048
  3. TISLELIZUMAB [Suspect]
     Active Substance: TISLELIZUMAB
     Indication: Small cell lung cancer extensive stage
     Route: 042
  4. SERPLULIMAB [Suspect]
     Active Substance: SERPLULIMAB
     Indication: Small cell lung cancer extensive stage
     Route: 042
  5. ADEBRELIMAB [Suspect]
     Active Substance: ADEBRELIMAB
     Indication: Small cell lung cancer extensive stage
     Route: 042

REACTIONS (11)
  - Fatigue [Unknown]
  - Nausea [Unknown]
  - Vomiting [Unknown]
  - Hypertension [Unknown]
  - Haematotoxicity [Unknown]
  - Hepatic function abnormal [Unknown]
  - Decreased appetite [Unknown]
  - Palmar-plantar erythrodysaesthesia syndrome [Unknown]
  - Pneumonia [Unknown]
  - Rash [Unknown]
  - Drug intolerance [Unknown]
